FAERS Safety Report 5444789-1 (Version None)
Quarter: 2007Q3

REPORT INFORMATION
  Report Type: 
  Country: None (occurrence: None)
  Receive Date: 20070906
  Receipt Date: 20070314
  Transmission Date: 20080115
  Serious: No
  Sender: FDA-Public Use
  Company Number: A0643216A

PATIENT
  Age: 57 Year
  Sex: Male

DRUGS (8)
  1. REQUIP [Suspect]
     Indication: RESTLESS LEGS SYNDROME
     Dosage: 1MG FOUR TIMES PER DAY
     Route: 048
  2. INSULIN [Concomitant]
  3. ALTACE [Concomitant]
  4. ZOCOR [Concomitant]
  5. PROZAC [Concomitant]
  6. XANAX [Concomitant]
  7. CYMBALTA [Concomitant]
  8. AMBIEN [Concomitant]

REACTIONS (1)
  - SOMNAMBULISM [None]
